FAERS Safety Report 18373396 (Version 2)
Quarter: 2020Q4

REPORT INFORMATION
  Report Type: Spontaneous
  Country: US (occurrence: US)
  Receive Date: 20201012
  Receipt Date: 20201023
  Transmission Date: 20210114
  Serious: Yes (Other)
  Sender: FDA-Public Use
  Company Number: US-PFIZER INC-2020391696

PATIENT
  Age: 66 Year
  Sex: Female
  Weight: 65.77 kg

DRUGS (3)
  1. CELEBREX [Suspect]
     Active Substance: CELECOXIB
     Indication: SPINAL OPERATION
     Dosage: UNK UNK, ALTERNATE DAY
     Dates: start: 2010
  2. CELEBREX [Suspect]
     Active Substance: CELECOXIB
     Indication: LIMB OPERATION
     Dosage: 200 MG, DAILY
     Route: 048
     Dates: start: 2005
  3. CELEBREX [Suspect]
     Active Substance: CELECOXIB
     Indication: BACK PAIN
     Dosage: UNK UNK, DAILY

REACTIONS (4)
  - Tearfulness [Unknown]
  - Off label use [Unknown]
  - Therapeutic product effect incomplete [Unknown]
  - Spondylitis [Unknown]

NARRATIVE: CASE EVENT DATE: 2005
